FAERS Safety Report 9216722 (Version 1)
Quarter: 2013Q2

REPORT INFORMATION
  Report Type: Spontaneous
  Country: US (occurrence: US)
  Receive Date: 20130408
  Receipt Date: 20130408
  Transmission Date: 20140414
  Serious: No
  Sender: FDA-Public Use
  Company Number: US-PFIZER INC-2013108775

PATIENT
  Age: 66 Year
  Sex: Female
  Weight: 57 kg

DRUGS (1)
  1. NICOTROL INHALER [Suspect]
     Indication: SMOKING CESSATION THERAPY
     Dosage: UNK
     Dates: start: 20130325, end: 20130327

REACTIONS (5)
  - Oropharyngeal pain [Unknown]
  - Throat irritation [Unknown]
  - Glossodynia [Unknown]
  - Cough [Unknown]
  - Confusional state [Unknown]
